FAERS Safety Report 8223596-0 (Version None)
Quarter: 2012Q1

REPORT INFORMATION
  Report Type: 
  Country: None (occurrence: None)
  Receive Date: 20120321
  Receipt Date: 20120314
  Transmission Date: 20120608
  Serious: No
  Sender: FDA-Public Use
  Company Number: US-PFIZER INC-2012020705

PATIENT
  Sex: Male
  Weight: 108 kg

DRUGS (10)
  1. LYRICA [Suspect]
     Indication: MUSCLE RELAXANT THERAPY
     Dosage: 150 MG, 2X/DAY
     Route: 048
  2. FUROSEMIDE [Concomitant]
     Indication: FLUID RETENTION
     Dosage: 40 MG, DAILY
     Dates: start: 20111201
  3. CYCLOBENZAPRINE [Concomitant]
     Indication: MUSCLE RELAXANT THERAPY
     Dosage: 10 MG, 2X/DAY
     Dates: start: 20110101
  4. ULTRAM [Concomitant]
     Indication: PAIN
     Dosage: 100 MG, 2X/DAY
  5. NEXIUM [Concomitant]
     Indication: HIATUS HERNIA
     Dosage: 40 MG, DAILY
     Dates: start: 20101201
  6. POTASSIUM [Concomitant]
     Indication: MINERAL SUPPLEMENTATION
     Dosage: 99 MG, DAILY
     Dates: start: 20091201
  7. LYRICA [Suspect]
     Indication: PAIN
     Dosage: 75 MG, 2X/DAY
     Route: 048
     Dates: start: 20110401
  8. LYRICA [Suspect]
     Indication: SLEEP DISORDER
  9. TYLENOL W/ CODEINE [Concomitant]
     Indication: PAIN
     Dosage: 30/300 MG, 2X/DAY
     Dates: start: 20110901
  10. ONE-A-DAY [Concomitant]
     Indication: VITAMIN SUPPLEMENTATION
     Dosage: UNK, DAILY
     Dates: start: 20091201

REACTIONS (1)
  - DRUG INEFFECTIVE [None]
